FAERS Safety Report 4901972-9 (Version None)
Quarter: 2006Q1

REPORT INFORMATION
  Report Type: 
  Country: None (occurrence: None)
  Receive Date: 20060206
  Receipt Date: 20060123
  Transmission Date: 20060701
  Serious: Yes (Death, Hospitalization)
  Sender: FDA-Public Use
  Company Number: AU-ROCHE-433307

PATIENT
  Age: 61 Year
  Sex: Female

DRUGS (5)
  1. CAPECITABINE [Suspect]
     Route: 048
     Dates: start: 20041124, end: 20041208
  2. ATENOLOL [Concomitant]
  3. IRBESARTAN [Concomitant]
  4. METFORMIN HYDROCHLORIDE [Concomitant]
  5. AMITRIPTYLINE HCL [Concomitant]

REACTIONS (8)
  - ANAEMIA [None]
  - BREAST CANCER [None]
  - DISEASE PROGRESSION [None]
  - HEPATIC FAILURE [None]
  - HYPERKALAEMIA [None]
  - MUCOSAL INFLAMMATION [None]
  - RENAL FAILURE [None]
  - THROMBOCYTOPENIA [None]
